FAERS Safety Report 5024862-2 (Version None)
Quarter: 2006Q2

REPORT INFORMATION
  Report Type: 
  Country: None (occurrence: None)
  Receive Date: 20060607
  Receipt Date: 20060524
  Transmission Date: 20061013
  Serious: Yes (Death, Life-Threatening, Hospitalization)
  Sender: FDA-Public Use
  Company Number: P200500017

PATIENT
  Age: 78 Year
  Sex: Male

DRUGS (14)
  1. PLENAXIS [Suspect]
     Indication: PROSTATE CANCER
     Dosage: 100 MG, SINGLE, INTRAMUSCULAR
     Route: 030
     Dates: start: 20050516, end: 20050516
  2. FUROSEMIDE [Concomitant]
  3. BENAZEPRIL (BENAZEPRIL) [Concomitant]
  4. ATENOLOL [Concomitant]
  5. ZOCOR [Concomitant]
  6. POTASSIUM (POTASSIUM) [Concomitant]
  7. TYLENOL WITH CODEINE (PARACETAMOL, CODEINE PHOSPHATE) [Concomitant]
  8. ZYRTEC [Concomitant]
  9. MULTIVITAMIN [Concomitant]
  10. MILK OF MAGNESIA TAB [Concomitant]
  11. OXYCONTIN [Concomitant]
  12. LUPRON [Concomitant]
  13. CASODEX [Concomitant]
  14. ASPIRIN [Concomitant]

REACTIONS (15)
  - ACUTE MYOCARDIAL INFARCTION [None]
  - BLOOD ALBUMIN DECREASED [None]
  - BLOOD ALKALINE PHOSPHATASE INCREASED [None]
  - BLOOD GLUCOSE INCREASED [None]
  - BLOOD POTASSIUM INCREASED [None]
  - BLOOD PRESSURE INCREASED [None]
  - CARDIAC FAILURE CONGESTIVE [None]
  - DEPRESSED LEVEL OF CONSCIOUSNESS [None]
  - DISEASE PROGRESSION [None]
  - HYPOTENSION [None]
  - PRODUCTIVE COUGH [None]
  - PROTEIN TOTAL DECREASED [None]
  - REFUSAL OF TREATMENT BY PATIENT [None]
  - RESPIRATORY RATE INCREASED [None]
  - SINUS TACHYCARDIA [None]
